FAERS Safety Report 23262924 (Version 1)
Quarter: 2023Q4

REPORT INFORMATION
  Report Type: Spontaneous
  Country: CA (occurrence: CA)
  Receive Date: 20231205
  Receipt Date: 20231205
  Transmission Date: 20240110
  Serious: Yes (Hospitalization)
  Sender: FDA-Public Use
  Company Number: CA-GE HEALTHCARE-2023CSU011009

PATIENT
  Age: 40 Year
  Sex: Male

DRUGS (10)
  1. OMNIPAQUE [Suspect]
     Active Substance: IOHEXOL
     Indication: Computerised tomogram
     Dosage: 70 ML ML AT 2.5 ML/SEC, ONCE
     Route: 042
     Dates: start: 20231129, end: 20231129
  2. OMNIPAQUE [Suspect]
     Active Substance: IOHEXOL
     Indication: Arthritis bacterial
  3. OMNIPAQUE [Suspect]
     Active Substance: IOHEXOL
     Indication: Osteomyelitis
  4. OMNIPAQUE [Suspect]
     Active Substance: IOHEXOL
     Indication: Crystal arthropathy
  5. VANCOMYCIN [Concomitant]
     Active Substance: VANCOMYCIN
     Dosage: 3000 MG
     Route: 041
     Dates: start: 20231129
  6. ENOXAPARIN SODIUM [Concomitant]
     Active Substance: ENOXAPARIN SODIUM
     Dosage: 300 MG
     Route: 041
     Dates: start: 20231129
  7. LIPITOR [Concomitant]
     Active Substance: ATORVASTATIN CALCIUM
     Dosage: 40 MG
     Route: 041
     Dates: start: 20231129
  8. PLAVIX [Concomitant]
     Active Substance: CLOPIDOGREL BISULFATE
     Dosage: 300 MG
     Route: 041
     Dates: start: 20231129
  9. ASPIRIN [Concomitant]
     Active Substance: ASPIRIN
     Dosage: 162 MG
     Route: 041
     Dates: start: 20231129
  10. TYLENOL [Concomitant]
     Active Substance: ACETAMINOPHEN
     Dosage: 1000 MG
     Route: 041
     Dates: start: 20231129

REACTIONS (5)
  - Dysphagia [Recovering/Resolving]
  - Urticaria [Recovering/Resolving]
  - Dyspnoea [Recovering/Resolving]
  - Retching [Recovering/Resolving]
  - Pruritus [Recovering/Resolving]

NARRATIVE: CASE EVENT DATE: 20231129
